FAERS Safety Report 7146282-7 (Version None)
Quarter: 2010Q4

REPORT INFORMATION
  Report Type: 
  Country: None (occurrence: None)
  Receive Date: 20101208
  Receipt Date: 20101130
  Transmission Date: 20110411
  Serious: Yes (Hospitalization, Other)
  Sender: FDA-Public Use
  Company Number: IN-SANOFI-AVENTIS-2010SA072510

PATIENT
  Age: 62 Year
  Sex: Male

DRUGS (6)
  1. ZOLPIDEM [Suspect]
     Route: 048
  2. ZOLPIDEM [Suspect]
     Indication: DRUG ABUSE
     Route: 048
  3. ZOLPIDEM [Suspect]
     Dosage: DOSE INCREASED TO 60 MG/DAY OVER THE NEXT 6 MONTHS.
     Route: 048
  4. ZOLPIDEM [Suspect]
     Dosage: DOSE INCREASED TO 60 MG/DAY OVER THE NEXT 6 MONTHS.
     Route: 048
  5. ZOLPIDEM [Suspect]
     Route: 048
  6. ZOLPIDEM [Suspect]
     Route: 048

REACTIONS (10)
  - AGGRESSION [None]
  - AGITATION [None]
  - DELIRIUM [None]
  - DISORIENTATION [None]
  - DRUG ABUSE [None]
  - DRUG DEPENDENCE [None]
  - DRUG WITHDRAWAL SYNDROME [None]
  - INCOHERENT [None]
  - IRRITABILITY [None]
  - RESTLESSNESS [None]
